FAERS Safety Report 8757718 (Version 1)
Quarter: 2012Q4

REPORT INFORMATION
  Report Type: 
  Country: US (occurrence: US)
  Receive Date: 20120828
  Receipt Date: 20120828
  Transmission Date: 20130627
  Serious: Yes (Hospitalization, Other)
  Sender: FDA-Public Use
  Company Number: US-ACTELION-A-US2010-40530

PATIENT
  Age: 74 Year
  Sex: Male

DRUGS (5)
  1. TRACLEER [Suspect]
     Indication: PULMONARY ARTERIAL HYPERTENSION
     Dosage: 125 mg, bid
     Route: 048
     Dates: start: 200806
  2. TRACLEER [Suspect]
     Dosage: 62.5 mg, bid
     Route: 048
     Dates: start: 200804, end: 200806
  3. REVATIO [Concomitant]
  4. COUMADIN [Concomitant]
  5. TYVASO [Concomitant]

REACTIONS (5)
  - Aneurysm [Unknown]
  - Dizziness [Unknown]
  - Atrial flutter [Recovering/Resolving]
  - Atrial fibrillation [Unknown]
  - Cardiac ablation [Unknown]
